FAERS Safety Report 4718612-4 (Version None)
Quarter: 2005Q3

REPORT INFORMATION
  Report Type: 
  Country: None (occurrence: None)
  Receive Date: 20050720
  Receipt Date: 20050719
  Transmission Date: 20060218
  Serious: Yes (Hospitalization)
  Sender: FDA-Public Use
  Company Number: US-GLAXOSMITHKLINE-A0566914A

PATIENT
  Age: 58 Year
  Sex: Male

DRUGS (7)
  1. AVANDAMET [Suspect]
     Indication: DIABETES MELLITUS NON-INSULIN-DEPENDENT
     Route: 048
     Dates: start: 20041118, end: 20050610
  2. AVANDIA [Suspect]
     Indication: DIABETES MELLITUS NON-INSULIN-DEPENDENT
     Dosage: 4MG PER DAY
     Route: 048
     Dates: start: 20050610
  3. METFORMIN [Suspect]
     Indication: DIABETES MELLITUS NON-INSULIN-DEPENDENT
     Dosage: 250MG TWICE PER DAY
     Dates: start: 20050610
  4. ALTACE [Suspect]
     Indication: DRUG USE FOR UNKNOWN INDICATION
     Dosage: 10MG PER DAY
     Route: 048
  5. ASPIRIN [Concomitant]
  6. LIPITOR [Concomitant]
  7. PLAVIX [Concomitant]

REACTIONS (4)
  - DIZZINESS [None]
  - HYPERGLYCAEMIA [None]
  - HYPOTENSION [None]
  - MYOCARDIAL INFARCTION [None]
